FAERS Safety Report 7644332-2 (Version None)
Quarter: 2011Q3

REPORT INFORMATION
  Report Type: 
  Country: None (occurrence: None)
  Receive Date: 20110729
  Receipt Date: 20110718
  Transmission Date: 20111222
  Serious: Yes (Hospitalization, Disabling, Other)
  Sender: FDA-Public Use
  Company Number: US-ELI_LILLY_AND_COMPANY-US201106004567

PATIENT
  Sex: Female
  Weight: 32.2 kg

DRUGS (12)
  1. ACTOS [Concomitant]
     Dosage: 30 MG, QD
     Dates: start: 20100427
  2. SERTRALINE HYDROCHLORIDE [Concomitant]
     Dosage: 50 MG, QD
     Route: 048
     Dates: start: 20100308
  3. HUMULIN N [Suspect]
     Dosage: 5 U, EACH EVENING
     Dates: start: 20101021
  4. BONIVA [Concomitant]
     Dosage: 150 MG, MONTHLY (1/M)
     Dates: start: 20060822
  5. FISH OIL [Concomitant]
     Dosage: 1200 MG, UNKNOWN
     Route: 048
     Dates: start: 20110527
  6. ASPIRIN [Concomitant]
     Dosage: 81 MG, QD
     Route: 048
     Dates: start: 20080917
  7. MULTI-VITAMIN [Concomitant]
     Dosage: UNK
     Route: 048
     Dates: start: 20110527
  8. COSOPT [Concomitant]
     Dosage: UNK, BID
     Dates: start: 20101019
  9. LISINOPRIL [Concomitant]
     Dosage: 5 MG, QD
     Route: 048
     Dates: start: 20090421
  10. HUMALOG [Suspect]
     Indication: TYPE 2 DIABETES MELLITUS
  11. HUMULIN N [Suspect]
     Indication: TYPE 2 DIABETES MELLITUS
     Dosage: 9 U, EACH MORNING
     Dates: start: 20101021
  12. METFORMIN HCL [Concomitant]
     Dosage: 1000 MG, BID
     Dates: start: 20080814

REACTIONS (10)
  - BLOOD GLUCOSE INCREASED [None]
  - MOBILITY DECREASED [None]
  - ABNORMAL BEHAVIOUR [None]
  - DRUG INEFFECTIVE [None]
  - POST PROCEDURAL COMPLICATION [None]
  - NODULE [None]
  - PERSONALITY CHANGE [None]
  - INTENTIONAL SELF-INJURY [None]
  - DISABILITY [None]
  - DUPUYTREN'S CONTRACTURE [None]
